FAERS Safety Report 7593740-7 (Version None)
Quarter: 2011Q3

REPORT INFORMATION
  Report Type: 
  Country: None (occurrence: None)
  Receive Date: 20110706
  Receipt Date: 20110622
  Transmission Date: 20111222
  Serious: Yes (Other)
  Sender: FDA-Public Use
  Company Number: ES-UCBSA-035869

PATIENT
  Age: 27 Year
  Sex: Male

DRUGS (2)
  1. VIMPAT [Suspect]
     Indication: EPILEPSY
     Route: 048
     Dates: start: 20090101
  2. CARBAMAZEPINE [Concomitant]
     Indication: EPILEPSY
     Dosage: 550 MG IN MORNING, 600 MG AT NOON AND 600 MG AT NIGHT
     Route: 048

REACTIONS (2)
  - DRUG INEFFECTIVE [None]
  - CONVULSION [None]
